FAERS Safety Report 4394446-8 (Version None)
Quarter: 2004Q3

REPORT INFORMATION
  Report Type: 
  Country: None (occurrence: None)
  Receive Date: 20040709
  Receipt Date: 20040709
  Transmission Date: 20050211
  Serious: Yes (Hospitalization)
  Sender: FDA-Public Use
  Company Number: None

PATIENT
  Age: 58 Year
  Sex: Female

DRUGS (3)
  1. ENBREL [Suspect]
     Indication: RHEUMATOID ARTHRITIS
     Dosage: 25 MG SUB Q MON + THUR.
     Dates: start: 20010501, end: 20040601
  2. AMBIEN [Concomitant]
  3. LEVERALL [Concomitant]

REACTIONS (4)
  - ASTHENIA [None]
  - DEMYELINATION [None]
  - DIFFICULTY IN WALKING [None]
  - HYPOAESTHESIA [None]
